FAERS Safety Report 14849579 (Version 2)
Quarter: 2018Q2

REPORT INFORMATION
  Report Type: Spontaneous
  Country: US (occurrence: US)
  Receive Date: 20180504
  Receipt Date: 20180614
  Transmission Date: 20180711
  Serious: Yes (Other)
  Sender: FDA-Public Use
  Company Number: PHEH2018US016646

PATIENT
  Sex: Female

DRUGS (2)
  1. ZOMETA [Suspect]
     Active Substance: ZOLEDRONIC ACID
     Indication: PRODUCT USED FOR UNKNOWN INDICATION
     Route: 065
  2. IBRANCE [Suspect]
     Active Substance: PALBOCICLIB
     Indication: BREAST CANCER
     Dosage: 125 MG, (DAILY/ 3 WEEKS ON, 1 WEEK OFF)
     Route: 048
     Dates: start: 20171121

REACTIONS (18)
  - Pain [Unknown]
  - Vision blurred [Recovered/Resolved]
  - Increased appetite [Unknown]
  - Joint swelling [Unknown]
  - Rhinorrhoea [Not Recovered/Not Resolved]
  - Cough [Not Recovered/Not Resolved]
  - Pain in extremity [Unknown]
  - Vomiting [Unknown]
  - Malignant neoplasm progression [Unknown]
  - Dizziness [Recovered/Resolved]
  - Secretion discharge [Unknown]
  - Insomnia [Unknown]
  - White blood cell count decreased [Not Recovered/Not Resolved]
  - Fatigue [Not Recovered/Not Resolved]
  - Tumour marker increased [Unknown]
  - Back pain [Unknown]
  - Arthralgia [Unknown]
  - Headache [Unknown]
